FAERS Safety Report 18453575 (Version 3)
Quarter: 2020Q4

REPORT INFORMATION
  Report Type: Spontaneous
  Country: US (occurrence: US)
  Receive Date: 20201102
  Receipt Date: 20201214
  Transmission Date: 20210114
  Serious: No
  Sender: FDA-Public Use
  Company Number: US-ASTRAZENECA-2020SF37127

PATIENT
  Sex: Male

DRUGS (2)
  1. SYMBICORT [Suspect]
     Active Substance: BUDESONIDE\FORMOTEROL FUMARATE DIHYDRATE
     Dosage: UNKNOWN UNKNOWN
     Route: 055
  2. PULMICORT FLEXHALER [Suspect]
     Active Substance: BUDESONIDE
     Dosage: 90 MCG 1 OR 2 PUFFS BUT THEN LATER SAID HE USED IT SOMETIMES DAILY AND THEN USED TWICE DAILY
     Route: 055

REACTIONS (3)
  - Chest pain [Unknown]
  - Device malfunction [Unknown]
  - Intentional device misuse [Unknown]
